FAERS Safety Report 21665251 (Version 1)
Quarter: 2022Q4

REPORT INFORMATION
  Report Type: Spontaneous
  Country: US (occurrence: US)
  Receive Date: 20221201
  Receipt Date: 20221201
  Transmission Date: 20230113
  Serious: Yes (Other)
  Sender: FDA-Public Use
  Company Number: US-STRIDES ARCOLAB LIMITED-2022SP008787

PATIENT
  Age: 55 Year
  Sex: Male

DRUGS (8)
  1. OXYCODONE [Suspect]
     Active Substance: OXYCODONE
     Indication: Musculoskeletal chest pain
     Dosage: UNK
     Route: 065
     Dates: start: 2018
  2. OXYCODONE [Suspect]
     Active Substance: OXYCODONE
     Indication: Breakthrough pain
     Dosage: UNK
     Route: 065
     Dates: start: 2018
  3. OXYCODONE [Suspect]
     Active Substance: OXYCODONE
     Dosage: UNK, FOR BREAKTHROUGH PAIN
     Route: 065
  4. MORPHINE SULFATE [Suspect]
     Active Substance: MORPHINE SULFATE
     Indication: Musculoskeletal chest pain
     Dosage: UNK
     Route: 065
     Dates: start: 2018
  5. GABAPENTIN [Suspect]
     Active Substance: GABAPENTIN
     Indication: Musculoskeletal chest pain
     Dosage: UNK
     Route: 065
     Dates: start: 2018
  6. HYDROMORPHONE [Suspect]
     Active Substance: HYDROMORPHONE
     Indication: Chest pain
     Dosage: UNK
     Route: 065
     Dates: start: 2018
  7. TAPENTADOL [Suspect]
     Active Substance: TAPENTADOL
     Indication: Chest pain
     Dosage: UNK, EXTENDED-RELEASE
     Route: 065
  8. TAPENTADOL [Suspect]
     Active Substance: TAPENTADOL
     Indication: Breakthrough pain
     Dosage: UNK, REDUCED BY 50%.
     Route: 065

REACTIONS (4)
  - Constipation [Recovered/Resolved]
  - Drug dependence [Unknown]
  - Therapy partial responder [Unknown]
  - Off label use [Unknown]
